FAERS Safety Report 5707034-5 (Version None)
Quarter: 2008Q2

REPORT INFORMATION
  Report Type: 
  Country: None (occurrence: None)
  Receive Date: 20080416
  Receipt Date: 20080410
  Transmission Date: 20081010
  Serious: Yes (Other)
  Sender: FDA-Public Use
  Company Number: B0376981A

PATIENT
  Sex: Male

DRUGS (2)
  1. PAROXETINE HCL [Suspect]
     Dates: start: 19990801
  2. DIAZEPAM [Concomitant]
     Dates: start: 19970324

REACTIONS (10)
  - AGITATION [None]
  - CONFUSIONAL STATE [None]
  - CRYING [None]
  - DRUG WITHDRAWAL SYNDROME [None]
  - FATIGUE [None]
  - INJURY [None]
  - INSOMNIA [None]
  - LETHARGY [None]
  - SUICIDAL IDEATION [None]
  - TREMOR [None]
